FAERS Safety Report 11595096 (Version 1)
Quarter: 2015Q4

REPORT INFORMATION
  Report Type: Spontaneous
  Country: BR (occurrence: BR)
  Receive Date: 20151006
  Receipt Date: 20151006
  Transmission Date: 20160304
  Serious: Yes (Other)
  Sender: FDA-Public Use
  Company Number: BR-AMGEN-BRASP2015102538

PATIENT
  Age: 12 Year
  Sex: Female

DRUGS (1)
  1. ENBREL [Suspect]
     Active Substance: ETANERCEPT
     Indication: JUVENILE IDIOPATHIC ARTHRITIS
     Dosage: 0.8 MG, WEEKLY
     Route: 065
     Dates: end: 201509

REACTIONS (2)
  - Proteinuria [Not Recovered/Not Resolved]
  - Nephritis [Not Recovered/Not Resolved]

NARRATIVE: CASE EVENT DATE: 2014
